FAERS Safety Report 7547839-1 (Version None)
Quarter: 2011Q2

REPORT INFORMATION
  Report Type: 
  Country: None (occurrence: None)
  Receive Date: 20110615
  Receipt Date: 20110607
  Transmission Date: 20111010
  Serious: Yes (Hospitalization)
  Sender: FDA-Public Use
  Company Number: US-BIOGENIDEC-2011BI020708

PATIENT
  Age: 68 Year
  Sex: Female

DRUGS (2)
  1. AVONEX [Suspect]
     Indication: MULTIPLE SCLEROSIS
     Route: 030
     Dates: start: 20060201, end: 20110525
  2. AVONEX [Suspect]
     Route: 030
     Dates: start: 19970101

REACTIONS (4)
  - INJECTION SITE HYPERTROPHY [None]
  - MUSCULOSKELETAL PAIN [None]
  - FLUID RETENTION [None]
  - SHOULDER ARTHROPLASTY [None]
